FAERS Safety Report 13388282 (Version 2)
Quarter: 2017Q2

REPORT INFORMATION
  Report Type: Spontaneous
  Country: US (occurrence: US)
  Receive Date: 20170330
  Receipt Date: 20170510
  Transmission Date: 20170830
  Serious: No
  Sender: FDA-Public Use
  Company Number: US-GLAXOSMITHKLINE-US2017042202

PATIENT
  Age: 43 Year
  Sex: Female

DRUGS (1)
  1. ABREVA [Suspect]
     Active Substance: DOCOSANOL
     Indication: ORAL HERPES
     Dosage: UNK
     Dates: start: 20170314

REACTIONS (6)
  - Oral pain [Not Recovered/Not Resolved]
  - Oral herpes [Not Recovered/Not Resolved]
  - Oedema mouth [Not Recovered/Not Resolved]
  - Infection [Unknown]
  - Condition aggravated [Not Recovered/Not Resolved]
  - Application site infection [Unknown]

NARRATIVE: CASE EVENT DATE: 201703
